FAERS Safety Report 6461797-2 (Version None)
Quarter: 2009Q4

REPORT INFORMATION
  Report Type: 
  Country: None (occurrence: None)
  Receive Date: 20091130
  Receipt Date: 20091117
  Transmission Date: 20100525
  Serious: Yes (Other)
  Sender: FDA-Public Use
  Company Number: PHEH2007US09163

PATIENT
  Sex: Female
  Weight: 65.76 kg

DRUGS (10)
  1. COMBIPATCH [Suspect]
     Indication: MENOPAUSE
     Dosage: UNK
     Route: 062
     Dates: start: 20021114, end: 20050101
  2. ORAL CONTRACEPTIVE NOS [Suspect]
     Dosage: UNK, UNK
     Route: 048
     Dates: start: 19650101, end: 19720101
  3. PREMPRO [Suspect]
     Indication: MENOPAUSE
     Dates: start: 19960101, end: 19990101
  4. ESTRATEST [Suspect]
     Indication: MENOPAUSE
     Dosage: UNK
     Dates: start: 19990601, end: 20020123
  5. PROVERA [Suspect]
     Indication: MENOPAUSE
     Dates: start: 19990601, end: 20050301
  6. MEDROXYPROGESTERONE [Suspect]
     Indication: MENOPAUSE
     Dosage: UNK
     Dates: start: 20040201, end: 20041201
  7. FEMHRT [Suspect]
     Indication: MENOPAUSE
     Dosage: UNK
     Dates: start: 20020123, end: 20021114
  8. ESTRACE [Suspect]
     Indication: MENOPAUSE
     Dosage: UNK
     Dates: start: 20021231, end: 20050301
  9. ESTRADIOL [Suspect]
     Indication: MENOPAUSE
     Dosage: UNK
     Dates: start: 20040101, end: 20041201
  10. CALCIUM WITH VITAMIN D [Concomitant]

REACTIONS (31)
  - ARTHRALGIA [None]
  - ASPIRATION BREAST [None]
  - BIOPSY [None]
  - BIOPSY SITE UNSPECIFIED ABNORMAL [None]
  - BONE DENSITY DECREASED [None]
  - BREAST CANCER IN SITU [None]
  - BREAST DISORDER [None]
  - BREAST FIBROSIS [None]
  - BREAST MASS [None]
  - BREAST PAIN [None]
  - CHEMOTHERAPY [None]
  - DEPRESSION [None]
  - ERYTHEMA [None]
  - HOT FLUSH [None]
  - LIGAMENT SPRAIN [None]
  - LOOSE TOOTH [None]
  - MALIGNANT BREAST LUMP REMOVAL [None]
  - MAMMOGRAM ABNORMAL [None]
  - MUSCLE STRAIN [None]
  - MUSCLE TIGHTNESS [None]
  - MUSCULAR WEAKNESS [None]
  - NAUSEA [None]
  - OSTEOPENIA [None]
  - OSTEOPOROSIS [None]
  - RADIATION SKIN INJURY [None]
  - RADIOTHERAPY [None]
  - RASH [None]
  - ROAD TRAFFIC ACCIDENT [None]
  - SKIN BURNING SENSATION [None]
  - SKIN REACTION [None]
  - TOOTH EXTRACTION [None]
